FAERS Safety Report 8570190-8 (Version None)
Quarter: 2012Q3

REPORT INFORMATION
  Report Type: 
  Country: None (occurrence: None)
  Receive Date: 20120803
  Receipt Date: 20120730
  Transmission Date: 20120928
  Serious: Yes (Hospitalization, Other)
  Sender: FDA-Public Use
  Company Number: PHHY2012ES065677

PATIENT
  Age: 60 Year
  Sex: Female

DRUGS (3)
  1. ADRENALIN IN OIL INJ [Suspect]
     Dosage: 0.5 MG, UNK
     Route: 030
  2. METRONIDAZOLE [Suspect]
     Dosage: 125 MG, ONCE/SINGLE
     Route: 048
  3. SIMVASTATIN [Concomitant]
     Dosage: 10 MG, UNK

REACTIONS (11)
  - PRURITUS [None]
  - ISCHAEMIC STROKE [None]
  - DYSPNOEA [None]
  - HEADACHE [None]
  - HEMIANOPIA [None]
  - RASH [None]
  - TACHYCARDIA [None]
  - VISION BLURRED [None]
  - ANAPHYLACTIC REACTION [None]
  - CEREBROVASCULAR SPASM [None]
  - HYPOTENSION [None]
